FAERS Safety Report 5239837-8 (Version None)
Quarter: 2007Q1

REPORT INFORMATION
  Report Type: 
  Country: None (occurrence: None)
  Receive Date: 20070214
  Receipt Date: 20070214
  Transmission Date: 20070707
  Serious: Yes (Other)
  Sender: FDA-Public Use
  Company Number: None

PATIENT
  Sex: Female
  Weight: 63.5036 kg

DRUGS (1)
  1. CHLORAPREP WITH TINT [Suspect]
     Indication: PREOPERATIVE CARE
     Dosage: TOP
     Route: 061
     Dates: start: 20070125, end: 20070125

REACTIONS (3)
  - APPLICATION SITE RASH [None]
  - RASH ERYTHEMATOUS [None]
  - RASH PRURITIC [None]
